FAERS Safety Report 25649068 (Version 1)
Quarter: 2025Q3

REPORT INFORMATION
  Report Type: Spontaneous
  Country: US (occurrence: US)
  Receive Date: 20250806
  Receipt Date: 20250806
  Transmission Date: 20251021
  Serious: No
  Sender: IPSEN BIOPHARMACEUTICALS, INC.
  Company Number: US-IPSEN Group, Research and Development-2025-18560

PATIENT
  Sex: Female

DRUGS (7)
  1. IQIRVO [Suspect]
     Active Substance: ELAFIBRANOR
     Indication: Primary biliary cholangitis
     Dates: start: 20241015
  2. ALUMINUM CHLORIDE [Concomitant]
     Active Substance: ALUMINUM CHLORIDE
  3. ERTAPENEM [Concomitant]
     Active Substance: ERTAPENEM
  4. EZETIMIBE [Concomitant]
     Active Substance: EZETIMIBE
  5. PRAVASTATIN [Concomitant]
     Active Substance: PRAVASTATIN
  6. URSODIOL [Concomitant]
     Active Substance: URSODIOL
  7. ZYRTEC [Concomitant]
     Active Substance: CETIRIZINE HYDROCHLORIDE

REACTIONS (1)
  - Pruritus [Unknown]
